FAERS Safety Report 16129271 (Version 1)
Quarter: 2019Q1

REPORT INFORMATION
  Report Type: Spontaneous
  Country: HR (occurrence: HR)
  Receive Date: 20190328
  Receipt Date: 20190328
  Transmission Date: 20190418
  Serious: Yes (Other)
  Sender: FDA-Public Use
  Company Number: HR-ELI_LILLY_AND_COMPANY-HR201903009029

PATIENT
  Sex: Male

DRUGS (1)
  1. ZYPADHERA [Suspect]
     Active Substance: OLANZAPINE PAMOATE
     Indication: PRODUCT USED FOR UNKNOWN INDICATION
     Dosage: UNK, UNKNOWN
     Route: 065
     Dates: start: 20160527

REACTIONS (6)
  - Speech disorder [Unknown]
  - Sedation [Unknown]
  - Asthenia [Unknown]
  - Post-injection delirium sedation syndrome [Unknown]
  - Somnolence [Unknown]
  - Gait disturbance [Unknown]
